FAERS Safety Report 8761395 (Version 2)
Quarter: 2012Q4

REPORT INFORMATION
  Report Type: Report from Study
  Country: JP (occurrence: JP)
  Receive Date: 20120830
  Receipt Date: 20120918
  Transmission Date: 20130627
  Serious: Yes (Death, Other)
  Sender: FDA-Public Use
  Company Number: JP-PFIZER INC-2012076315

PATIENT
  Age: 80 Year
  Sex: Male
  Weight: 41.5 kg

DRUGS (10)
  1. TEMSIROLIMUS [Suspect]
     Indication: RENAL CELL CARCINOMA
     Dosage: 25 mg once a week
     Route: 041
     Dates: start: 20120124, end: 20120306
  2. TEMSIROLIMUS [Suspect]
     Dosage: 15 mg, weekly
     Dates: start: 20120410, end: 20120508
  3. TEMSIROLIMUS [Suspect]
     Dosage: 15 mg, weekly
     Dates: start: 20120522, end: 20120529
  4. TEMSIROLIMUS [Suspect]
     Dosage: 15 mg, weekly
     Dates: start: 20120612
  5. POLARAMIN [Concomitant]
     Indication: PROPHYLAXIS
     Dosage: 5 mg, weekly
     Route: 042
     Dates: start: 20120124, end: 20120306
  6. POLARAMIN [Concomitant]
     Dosage: 5 mg, weekly
     Dates: start: 20120410, end: 20120508
  7. POLARAMIN [Concomitant]
     Dosage: 5 mg, weekly
     Dates: start: 20120522, end: 20120529
  8. POLARAMIN [Concomitant]
     Dosage: 5 mg, UNK
     Dates: start: 20120612
  9. RINDERON [Concomitant]
     Dosage: 2 mg, 1x/day
     Route: 042
     Dates: start: 20120125
  10. RINDERON [Concomitant]
     Dosage: 2 mg, 1x/day
     Route: 048
     Dates: start: 20120217

REACTIONS (3)
  - Disease progression [Fatal]
  - Renal cell carcinoma [Fatal]
  - Interstitial lung disease [Not Recovered/Not Resolved]
